FAERS Safety Report 5571085-4 (Version None)
Quarter: 2007Q4

REPORT INFORMATION
  Report Type: 
  Country: None (occurrence: None)
  Receive Date: 20071221
  Receipt Date: 20071220
  Transmission Date: 20080405
  Serious: Yes (Other)
  Sender: FDA-Public Use
  Company Number: US-WYE-H01343507

PATIENT
  Sex: Female

DRUGS (11)
  1. EFFEXOR XR [Suspect]
     Indication: DEPRESSION
     Route: 048
     Dates: start: 20040101, end: 20071101
  2. EFFEXOR XR [Suspect]
     Dosage: 150 MG DAILY, TAPERING OFF
     Route: 048
     Dates: start: 20071101, end: 20071130
  3. LAMICTAL [Concomitant]
     Dosage: UNKNOWN
  4. INSULIN [Concomitant]
     Indication: DIABETES MELLITUS
     Dosage: UNKNOWN
  5. ABILIFY [Concomitant]
     Indication: PSYCHOTIC DISORDER
     Route: 048
     Dates: start: 20070810
  6. ACETYLSALICYLIC ACID SRT [Concomitant]
     Dosage: UNKNOWN
  7. CYCLOBENZAPRINE HCL [Concomitant]
     Dosage: UNKNOWN
  8. GABITRIL [Concomitant]
     Dosage: UNKNOWN
  9. TRAZODONE HCL [Concomitant]
     Dosage: UNKNOWN
  10. DILANTIN [Suspect]
     Indication: CONVULSION
     Dosage: UNKNOWN
  11. ZETIA [Concomitant]
     Indication: BLOOD CHOLESTEROL INCREASED
     Dosage: UNKNOWN

REACTIONS (1)
  - PULMONARY FIBROSIS [None]
